FAERS Safety Report 5574518-2 (Version None)
Quarter: 2007Q4

REPORT INFORMATION
  Report Type: 
  Country: None (occurrence: None)
  Receive Date: 20071227
  Receipt Date: 20071220
  Transmission Date: 20080405
  Serious: Yes (Life-Threatening)
  Sender: FDA-Public Use
  Company Number: JP-BRACCO-000026

PATIENT
  Age: 66 Year
  Sex: Male

DRUGS (2)
  1. IOPAMIDOL [Suspect]
     Indication: LARGE INTESTINE CARCINOMA
     Route: 042
     Dates: start: 20071129, end: 20071129
  2. IOPAMIDOL [Suspect]
     Indication: COMPUTERISED TOMOGRAM
     Route: 042
     Dates: start: 20071129, end: 20071129

REACTIONS (3)
  - HEADACHE [None]
  - INTRACRANIAL VENOUS SINUS THROMBOSIS [None]
  - VOMITING [None]
